FAERS Safety Report 5806907-2 (Version None)
Quarter: 2008Q3

REPORT INFORMATION
  Report Type: 
  Country: None (occurrence: None)
  Receive Date: 20080711
  Receipt Date: 20080701
  Transmission Date: 20090109
  Serious: Yes (Life-Threatening)
  Sender: FDA-Public Use
  Company Number: US-JNJFOC-20080700565

PATIENT
  Sex: Male

DRUGS (1)
  1. REOPRO [Suspect]
     Indication: CORONARY ANGIOPLASTY
     Route: 042

REACTIONS (1)
  - ARTERIAL INJURY [None]
